FAERS Safety Report 5754211-3 (Version None)
Quarter: 2008Q2

REPORT INFORMATION
  Report Type: 
  Country: None (occurrence: None)
  Receive Date: 20080530
  Receipt Date: 20080519
  Transmission Date: 20081010
  Serious: Yes (Other)
  Sender: FDA-Public Use
  Company Number: US-PFIZER INC-2006101511

PATIENT
  Sex: Female
  Weight: 63.5 kg

DRUGS (15)
  1. LYRICA [Suspect]
     Indication: NEUROPATHY PERIPHERAL
     Route: 048
  2. LYRICA [Suspect]
     Indication: POST HERPETIC NEURALGIA
  3. LYRICA [Suspect]
     Indication: FIBROMYALGIA
  4. NEURONTIN [Suspect]
     Indication: POST HERPETIC NEURALGIA
     Dosage: TEXT:UNKNOWN-FREQ:UNKNOWN
     Route: 048
     Dates: start: 20040101, end: 20060201
  5. CELEBREX [Concomitant]
     Route: 048
  6. LESCOL XL [Concomitant]
     Route: 048
  7. FEMHRT [Concomitant]
     Route: 048
  8. CARISOPRODOL [Concomitant]
     Route: 048
  9. ACIPHEX [Concomitant]
     Route: 048
  10. ACETYLSALICYLIC ACID SRT [Concomitant]
     Route: 048
  11. FENTANYL-100 [Concomitant]
     Route: 061
  12. OXYCODONE HCL [Concomitant]
     Route: 048
  13. CALCIUM [Concomitant]
     Route: 048
  14. ALL OTHER THERAPEUTIC PRODUCTS [Concomitant]
     Route: 048
  15. VITAMIN CAP [Concomitant]
     Route: 048

REACTIONS (16)
  - ACTIVITIES OF DAILY LIVING IMPAIRED [None]
  - APHASIA [None]
  - ASTHENIA [None]
  - BLOOD CHOLESTEROL INCREASED [None]
  - DRUG INEFFECTIVE [None]
  - FATIGUE [None]
  - IMPAIRED DRIVING ABILITY [None]
  - MYALGIA [None]
  - PAIN [None]
  - PYREXIA [None]
  - QUALITY OF LIFE DECREASED [None]
  - SOMNOLENCE [None]
  - TREMOR [None]
  - UNEVALUABLE EVENT [None]
  - VITAMIN D DEFICIENCY [None]
  - WITHDRAWAL SYNDROME [None]
